FAERS Safety Report 20429699 (Version 1)
Quarter: 2022Q1

REPORT INFORMATION
  Report Type: Report from Study
  Country: NL (occurrence: NL)
  Receive Date: 20220204
  Receipt Date: 20220204
  Transmission Date: 20220424
  Serious: Yes (Life-Threatening, Hospitalization)
  Sender: FDA-Public Use
  Company Number: NL-SERVIER-S19010367

PATIENT

DRUGS (7)
  1. ONCASPAR [Suspect]
     Active Substance: PEGASPARGASE
     Indication: Acute lymphocytic leukaemia
     Dosage: 2250 IU, UNK
     Route: 065
     Dates: start: 20190816, end: 20190816
  2. ADRIAMYCIN [Suspect]
     Active Substance: DOXORUBICIN HYDROCHLORIDE
     Indication: Acute lymphocytic leukaemia
     Dosage: 56 MG, UNK
     Route: 065
     Dates: start: 20190813, end: 20190820
  3. VINBLASTINE [Suspect]
     Active Substance: VINBLASTINE
     Indication: Acute lymphocytic leukaemia
     Dosage: 10 MG, UNK
     Route: 065
     Dates: start: 20190813, end: 20190820
  4. DEXAMETHASONE [Suspect]
     Active Substance: DEXAMETHASONE
     Indication: Acute lymphocytic leukaemia
     Dosage: 10 MG, UNK
     Route: 048
     Dates: start: 20190813, end: 20190825
  5. PREDNISOLONE [Concomitant]
     Active Substance: PREDNISOLONE
     Indication: Acute lymphocytic leukaemia
     Dosage: 25 MG, UNK
     Route: 037
     Dates: start: 20190813, end: 20190813
  6. BLINATUMOMAB [Concomitant]
     Active Substance: BLINATUMOMAB
     Indication: Acute lymphocytic leukaemia
     Dosage: 28 ?G, UNK
     Route: 065
     Dates: start: 20190704, end: 20190728
  7. METHOTREXATE [Concomitant]
     Active Substance: METHOTREXATE
     Indication: Acute lymphocytic leukaemia
     Dosage: 15 MG, UNK
     Route: 037
     Dates: start: 20190813, end: 20190813

REACTIONS (1)
  - Sepsis [Recovered/Resolved]

NARRATIVE: CASE EVENT DATE: 20190825
